FAERS Safety Report 5909483-9 (Version None)
Quarter: 2008Q4

REPORT INFORMATION
  Report Type: 
  Country: None (occurrence: None)
  Receive Date: 20081006
  Receipt Date: 20080924
  Transmission Date: 20090506
  Serious: Yes (Other)
  Sender: FDA-Public Use
  Company Number: US-PFIZER INC-2008082228

PATIENT
  Sex: Female

DRUGS (4)
  1. CHANTIX [Suspect]
  2. DRUG, UNSPECIFIED [Concomitant]
  3. ANTIHYPERTENSIVES [Concomitant]
  4. ANTIDEPRESSANTS [Concomitant]

REACTIONS (4)
  - ANXIETY [None]
  - DEPRESSION [None]
  - FEELING OF DESPAIR [None]
  - HOMICIDAL IDEATION [None]
